FAERS Safety Report 24595807 (Version 4)
Quarter: 2025Q2

REPORT INFORMATION
  Report Type: Spontaneous
  Country: AE (occurrence: AE)
  Receive Date: 20241109
  Receipt Date: 20250522
  Transmission Date: 20250716
  Serious: Yes (Hospitalization, Other)
  Sender: SANOFI AVENTIS
  Company Number: AE-BIOVITRUM-2024-AE-014062

PATIENT
  Age: 4 Year
  Sex: Male

DRUGS (1)
  1. ALTUVIIIO [Suspect]
     Active Substance: EFANESOCTOCOG ALFA
     Indication: Factor VIII deficiency
     Dosage: 50 IU, QW
     Route: 042

REACTIONS (3)
  - Joint swelling [Not Recovered/Not Resolved]
  - Haemorrhage [Recovered/Resolved]
  - Factor VIII inhibition [Not Recovered/Not Resolved]
